FAERS Safety Report 19064463 (Version 1)
Quarter: 2021Q1

REPORT INFORMATION
  Report Type: Spontaneous
  Country: US (occurrence: US)
  Receive Date: 20210326
  Receipt Date: 20210326
  Transmission Date: 20210420
  Serious: Yes (Other)
  Sender: FDA-Public Use
  Company Number: US-BAXTER-2021BAX005600

PATIENT
  Age: 23 Year
  Sex: Female

DRUGS (3)
  1. CISPLATIN. [Suspect]
     Active Substance: CISPLATIN
     Indication: CHEMOTHERAPY
     Route: 065
  2. DOXIL [Suspect]
     Active Substance: DOXORUBICIN HYDROCHLORIDE
     Indication: CHEMOTHERAPY
     Route: 065
  3. ETOPOSIDE. [Suspect]
     Active Substance: ETOPOSIDE
     Indication: CHEMOTHERAPY
     Route: 065

REACTIONS (10)
  - Syncope [Unknown]
  - Abdominal pain [Unknown]
  - Nausea [Unknown]
  - Tinnitus [Unknown]
  - Hypotension [Unknown]
  - Cardiac murmur [Unknown]
  - Exposure during pregnancy [Unknown]
  - Staphylococcal bacteraemia [Unknown]
  - Tension headache [Unknown]
  - Therapy partial responder [Unknown]
